FAERS Safety Report 6555965-9 (Version None)
Quarter: 2010Q1

REPORT INFORMATION
  Report Type: 
  Country: None (occurrence: None)
  Receive Date: 20100128
  Receipt Date: 20090608
  Transmission Date: 20100710
  Serious: Yes (Hospitalization, Other)
  Sender: FDA-Public Use
  Company Number: US-TEVA-169457USA

PATIENT
  Sex: Male

DRUGS (17)
  1. COPAXONE [Interacting]
     Indication: MULTIPLE SCLEROSIS
     Route: 058
     Dates: start: 20080122, end: 20080301
  2. COPAXONE [Concomitant]
  3. UNSPECIFIED HEART MEDICATION NOS [Interacting]
  4. LISINOPRIL [Suspect]
  5. HYDROCHLOROTHIAZIDE [Suspect]
  6. DULOXETINE HYDROCHLORIDE [Concomitant]
  7. OXYCODONE HCL [Concomitant]
  8. WELLBUTRIN XL [Concomitant]
  9. ZOLPIDEM TARTRATE [Concomitant]
  10. ACETYLSALICYLIC ACID [Concomitant]
  11. FISH OIL [Concomitant]
  12. IRON [Concomitant]
  13. ATORVASTATIN CALCIUM [Concomitant]
  14. MULTI-VITAMIN [Concomitant]
  15. TOCOPHEROL CONCENTRATE CAP [Concomitant]
  16. EZETIMIBE [Concomitant]
  17. ELORAZEPAM [Concomitant]

REACTIONS (6)
  - DRUG INTERACTION [None]
  - HYPOTENSION [None]
  - LOSS OF CONSCIOUSNESS [None]
  - MULTIPLE SCLEROSIS [None]
  - RENAL FAILURE ACUTE [None]
  - SYNCOPE [None]
